FAERS Safety Report 11609664 (Version 1)
Quarter: 2015Q4

REPORT INFORMATION
  Report Type: Spontaneous
  Country: US (occurrence: US)
  Receive Date: 20151007
  Receipt Date: 20151007
  Transmission Date: 20160304
  Serious: Yes (Hospitalization)
  Sender: FDA-Public Use
  Company Number: US-ABBVIE-15K-163-1442900-00

PATIENT
  Age: 46 Year
  Sex: Female
  Weight: 82.63 kg

DRUGS (1)
  1. HUMIRA [Suspect]
     Active Substance: ADALIMUMAB
     Indication: CROHN^S DISEASE
     Route: 058
     Dates: start: 20150413

REACTIONS (6)
  - Wrong technique in product usage process [Unknown]
  - Anastomotic stenosis [Recovered/Resolved]
  - Crohn^s disease [Recovered/Resolved]
  - Incorrect dose administered [Unknown]
  - Small intestinal obstruction [Recovered/Resolved]
  - Intestinal dilatation [Recovered/Resolved]

NARRATIVE: CASE EVENT DATE: 2015
